FAERS Safety Report 4358821-X (Version None)
Quarter: 2004Q2

REPORT INFORMATION
  Report Type: 
  Country: None (occurrence: None)
  Receive Date: 20040517
  Receipt Date: 20040517
  Transmission Date: 20050107
  Serious: Yes (Hospitalization)
  Sender: FDA-Public Use
  Company Number: None

PATIENT
  Age: 61 Year
  Sex: Female

DRUGS (12)
  1. ZELNORM [Suspect]
     Indication: IRRITABLE BOWEL SYNDROME
  2. HUMULIN R [Concomitant]
  3. LANTUS [Concomitant]
  4. SYNTHROID [Concomitant]
  5. TAMOXIFEN CITRATE [Concomitant]
  6. ACTONEL [Concomitant]
  7. CACLIUM SUPPLEMENT [Concomitant]
  8. FOLIC ACID [Concomitant]
  9. ASPIRIN [Concomitant]
  10. SEROQUEL [Concomitant]
  11. FERROUS SULFATE TAB [Concomitant]
  12. EPOGEN [Concomitant]

REACTIONS (4)
  - ABDOMINAL COMPARTMENT SYNDROME [None]
  - PNEUMATOSIS CYSTOIDES INTESTINALIS [None]
  - POST PROCEDURAL COMPLICATION [None]
  - VEIN DISORDER [None]
